FAERS Safety Report 5083982-7 (Version None)
Quarter: 2006Q3

REPORT INFORMATION
  Report Type: 
  Country: None (occurrence: None)
  Receive Date: 20060814
  Receipt Date: 20060801
  Transmission Date: 20061208
  Serious: Yes (Other)
  Sender: FDA-Public Use
  Company Number: 2006080625

PATIENT
  Age: 41 Year
  Sex: Female
  Weight: 72 kg

DRUGS (1)
  1. LYRICA [Suspect]
     Indication: NEURALGIA
     Dosage: ORAL
     Route: 048
     Dates: start: 20060201, end: 20060706

REACTIONS (1)
  - TACHYCARDIA [None]
